FAERS Safety Report 8413363-7 (Version None)
Quarter: 2012Q2

REPORT INFORMATION
  Report Type: 
  Country: None (occurrence: None)
  Receive Date: 20120605
  Receipt Date: 20120530
  Transmission Date: 20120825
  Serious: No
  Sender: FDA-Public Use
  Company Number: US-TEVA-340725USA

PATIENT
  Sex: Female
  Weight: 51.756 kg

DRUGS (4)
  1. SINEMET [Concomitant]
     Indication: PARKINSON'S DISEASE
     Dosage: 75 MILLIGRAM;
     Route: 048
  2. CARISOPRODOL [Concomitant]
     Route: 048
  3. AZILECT [Suspect]
     Indication: PARKINSON'S DISEASE
     Route: 048
     Dates: start: 20120522
  4. LORAZEPAM [Concomitant]

REACTIONS (3)
  - MUSCLE SPASMS [None]
  - PAIN [None]
  - MUSCULOSKELETAL STIFFNESS [None]
